FAERS Safety Report 4801747-5 (Version None)
Quarter: 2005Q4

REPORT INFORMATION
  Report Type: 
  Country: None (occurrence: None)
  Receive Date: 20051014
  Receipt Date: 20051014
  Transmission Date: 20060501
  Serious: Yes (Hospitalization)
  Sender: FDA-Public Use
  Company Number: None

PATIENT
  Sex: Female
  Weight: 64 kg

DRUGS (1)
  1. CIPRO [Suspect]
     Indication: URINARY TRACT INFECTION
     Dosage: 400MG  ONCE  IV
     Route: 042

REACTIONS (4)
  - HYPOTENSION [None]
  - OXYGEN SATURATION DECREASED [None]
  - RASH [None]
  - SWELLING FACE [None]
